FAERS Safety Report 9958598 (Version 1)
Quarter: 2014Q1

REPORT INFORMATION
  Report Type: Spontaneous
  Country: US (occurrence: None)
  Receive Date: 20140124
  Receipt Date: 20140124
  Transmission Date: 20141002
  Serious: Yes (Other)
  Sender: FDA-Public Use
  Company Number: 2011AP001808

PATIENT
  Age: 42 Year
  Sex: Female

DRUGS (1)
  1. LITHIUM CARBONATE CAPSULES [Suspect]
     Indication: BIPOLAR II DISORDER

REACTIONS (1)
  - Diabetes insipidus [None]
